FAERS Safety Report 25535154 (Version 1)
Quarter: 2025Q3

REPORT INFORMATION
  Report Type: Report from Study
  Country: AR (occurrence: AR)
  Receive Date: 20250709
  Receipt Date: 20250709
  Transmission Date: 20251021
  Serious: Yes (Other)
  Sender: UCB
  Company Number: AR-UCBSA-2025041311

PATIENT
  Age: 61 Year
  Sex: Male

DRUGS (2)
  1. ROTIGOTINE [Suspect]
     Active Substance: ROTIGOTINE
     Indication: Parkinson^s disease
     Dosage: 2 MILLIGRAM, ONCE DAILY (QD)
     Route: 062
     Dates: start: 20250619, end: 20250625
  2. ROTIGOTINE [Suspect]
     Active Substance: ROTIGOTINE
     Dosage: 4 MILLIGRAM, ONCE DAILY (QD)
     Route: 062
     Dates: start: 20250626, end: 20250627

REACTIONS (5)
  - Tremor [Not Recovered/Not Resolved]
  - Movement disorder [Not Recovered/Not Resolved]
  - Hyperhidrosis [Not Recovered/Not Resolved]
  - Blood pressure increased [Not Recovered/Not Resolved]
  - Headache [Not Recovered/Not Resolved]

NARRATIVE: CASE EVENT DATE: 20250626
